FAERS Safety Report 8963897 (Version 2)
Quarter: 2013Q2

REPORT INFORMATION
  Report Type: Report from Study
  Country: JP (occurrence: JP)
  Receive Date: 20121214
  Receipt Date: 20130620
  Transmission Date: 20140414
  Serious: Yes (Other)
  Sender: FDA-Public Use
  Company Number: JP-009507513-1212JPN002564

PATIENT
  Age: 44 Year
  Sex: Male
  Weight: 69 kg

DRUGS (10)
  1. PEGINTRON [Suspect]
     Indication: CHRONIC HEPATITIS C
     Dosage: 1.5 MICROGRAM PER KILOGRAM, QW
     Route: 058
     Dates: start: 20120807, end: 20130117
  2. REBETOL [Suspect]
     Indication: CHRONIC HEPATITIS C
     Dosage: 800 MG, QD
     Route: 048
     Dates: start: 20120807
  3. REBETOL [Suspect]
     Dosage: 400 MG, QD
     Route: 048
     Dates: start: 20120912, end: 20120926
  4. TELAVIC [Suspect]
     Indication: CHRONIC HEPATITIS C
     Dosage: 2250 MG, QD
     Route: 048
     Dates: start: 20120807, end: 20121031
  5. AMLODIN OD [Concomitant]
     Indication: HYPERTENSION
     Dosage: 5 MG, QD
     Route: 048
  6. ALESION [Concomitant]
     Indication: PROPHYLAXIS
     Dosage: 20 MG, QD
     Route: 048
     Dates: start: 20120806, end: 20120918
  7. LOXONIN [Concomitant]
     Indication: PYREXIA
     Dosage: 60 MG/DAY, PRN
     Route: 048
     Dates: start: 20120807, end: 20130305
  8. MUCOSTA [Concomitant]
     Indication: PROPHYLAXIS
     Dosage: 100MG/DAY,PRN
     Route: 048
     Dates: start: 20120807, end: 20130305
  9. EURASON [Concomitant]
     Indication: RASH
     Dosage: Q.S/DAY MORNING AND EVENING
     Route: 061
     Dates: start: 20120811, end: 20130131
  10. CELESTAMINE COMBINATION [Concomitant]
     Indication: RASH
     Dosage: 2 TABLETS, QD
     Route: 048
     Dates: start: 20120812, end: 20120904

REACTIONS (1)
  - Anaemia [Not Recovered/Not Resolved]
